FAERS Safety Report 17088015 (Version 1)
Quarter: 2019Q4

REPORT INFORMATION
  Report Type: Report from Study
  Country: KR (occurrence: KR)
  Receive Date: 20191128
  Receipt Date: 20191128
  Transmission Date: 20200122
  Serious: Yes (Hospitalization)
  Sender: FDA-Public Use
  Company Number: KR-CELLTRION INC.-2019KR025474

PATIENT

DRUGS (8)
  1. REMSIMA [Suspect]
     Active Substance: INFLIXIMAB
     Indication: CROHN^S DISEASE
     Dosage: 300 MG
     Route: 042
     Dates: start: 20180920
  2. REMSIMA [Suspect]
     Active Substance: INFLIXIMAB
     Dosage: 330 MG
     Route: 042
     Dates: start: 20190415
  3. FOLATE [Concomitant]
     Active Substance: FOLATE SODIUM
     Indication: CROHN^S DISEASE
     Dosage: 1 DF, DAILY
     Dates: start: 20160728
  4. REMSIMA [Suspect]
     Active Substance: INFLIXIMAB
     Dosage: 310 MG
     Route: 042
     Dates: start: 20181224
  5. REMSIMA [Suspect]
     Active Substance: INFLIXIMAB
     Dosage: 325 MG
     Route: 042
     Dates: start: 20190218
  6. REMSIMA [Suspect]
     Active Substance: INFLIXIMAB
     Dosage: 307 MG
     Route: 042
     Dates: start: 20181008
  7. REMSIMA [Suspect]
     Active Substance: INFLIXIMAB
     Dosage: 310 MG
     Route: 042
     Dates: start: 20181029
  8. AZAFRINE [Concomitant]
     Active Substance: AZATHIOPRINE
     Indication: CROHN^S DISEASE
     Dosage: 100 MG, DAILY
     Route: 048
     Dates: start: 20160728

REACTIONS (4)
  - Underdose [Unknown]
  - Product use issue [Unknown]
  - Overdose [Unknown]
  - Crohn^s disease [Recovered/Resolved]

NARRATIVE: CASE EVENT DATE: 20190511
